FAERS Safety Report 17754057 (Version 1)
Quarter: 2020Q2

REPORT INFORMATION
  Report Type: Spontaneous
  Country: ID (occurrence: ID)
  Receive Date: 20200507
  Receipt Date: 20200507
  Transmission Date: 20200714
  Serious: Yes (Hospitalization, Other)
  Sender: FDA-Public Use
  Company Number: ID-SA-2020SA111881

PATIENT
  Age: 31 Year
  Sex: Male

DRUGS (7)
  1. ALPRAZOLAM. [Suspect]
     Active Substance: ALPRAZOLAM
  2. CLOPIDOGREL BISULFATE. [Suspect]
     Active Substance: CLOPIDOGREL BISULFATE
  3. ACETYLSALICYLIC ACID [Suspect]
     Active Substance: ASPIRIN
  4. SPIRONOLACTONE. [Suspect]
     Active Substance: SPIRONOLACTONE
  5. BISOPROLOL SALT NOT SPECIFIED [Suspect]
     Active Substance: BISOPROLOL
  6. FUROSEMIDE. [Suspect]
     Active Substance: FUROSEMIDE
     Dosage: UNK
  7. DIGOXIN. [Suspect]
     Active Substance: DIGOXIN

REACTIONS (17)
  - Nausea [Unknown]
  - Hepatic vein dilatation [Unknown]
  - Renal impairment [Recovering/Resolving]
  - Paralysis [Unknown]
  - Ascites [Unknown]
  - Abdominal distension [Unknown]
  - Abdominal tenderness [Unknown]
  - Abdominal pain upper [Unknown]
  - Oedema peripheral [Unknown]
  - Asthenia [Unknown]
  - Cardiac murmur [Unknown]
  - Congestive hepatopathy [Unknown]
  - Jaundice [Unknown]
  - Myalgia [Unknown]
  - Chromaturia [Unknown]
  - Mental impairment [Unknown]
  - Jugular vein distension [Unknown]
